FAERS Safety Report 25761246 (Version 1)
Quarter: 2025Q3

REPORT INFORMATION
  Report Type: Spontaneous
  Country: US (occurrence: US)
  Receive Date: 20250904
  Receipt Date: 20250904
  Transmission Date: 20251021
  Serious: No
  Sender: BRAINTREE
  Company Number: US-BRAINTREE LABORATORIES, INC.-2025BTE00002

PATIENT
  Sex: Male

DRUGS (1)
  1. PEG-3350 AND ELECTROLYTES [Suspect]
     Active Substance: POLYETHYLENE GLYCOL 3350\POTASSIUM CHLORIDE\SODIUM BICARBONATE\SODIUM CHLORIDE\SODIUM SULFATE
     Indication: Colonoscopy
     Dosage: 3 L, 1X; ONCE
     Route: 048
     Dates: start: 20250102

REACTIONS (2)
  - Abdominal pain [Not Recovered/Not Resolved]
  - Wrong technique in product usage process [Not Recovered/Not Resolved]

NARRATIVE: CASE EVENT DATE: 20250102
